FAERS Safety Report 12923967 (Version 1)
Quarter: 2016Q4

REPORT INFORMATION
  Report Type: Spontaneous
  Country: US (occurrence: US)
  Receive Date: 20161109
  Receipt Date: 20161109
  Transmission Date: 20170207
  Serious: No
  Sender: FDA-Public Use
  Company Number: US-BAYER-2016-209817

PATIENT
  Age: 49 Year
  Sex: Male
  Weight: 70.3 kg

DRUGS (2)
  1. MORPHINE [Suspect]
     Active Substance: MORPHINE
  2. ALEVE [Suspect]
     Active Substance: NAPROXEN SODIUM
     Indication: PAIN
     Dosage: 1 DF, UNK
     Route: 048
     Dates: start: 1999

REACTIONS (2)
  - Soliloquy [None]
  - Drug interaction [None]
